FAERS Safety Report 5498663-5 (Version None)
Quarter: 2007Q4

REPORT INFORMATION
  Report Type: 
  Country: None (occurrence: None)
  Receive Date: 20071026
  Receipt Date: 20071016
  Transmission Date: 20080405
  Serious: Yes (Hospitalization, Other)
  Sender: FDA-Public Use
  Company Number: US-JNJFOC-20071004488

PATIENT
  Sex: Female
  Weight: 64.86 kg

DRUGS (5)
  1. DURAGESIC-100 [Suspect]
     Indication: PAIN
     Route: 062
  2. PERCOCET [Concomitant]
     Indication: BREAKTHROUGH PAIN
     Route: 048
  3. PERCOCET [Concomitant]
     Indication: HEADACHE
     Route: 048
  4. LORTAB [Concomitant]
     Indication: BREAKTHROUGH PAIN
     Route: 048
  5. NORCO [Concomitant]
     Indication: MUSCULOSKELETAL PAIN
     Route: 048

REACTIONS (3)
  - HYPERHIDROSIS [None]
  - HYPERTENSION [None]
  - ROTATOR CUFF SYNDROME [None]
